FAERS Safety Report 20885477 (Version 1)
Quarter: 2022Q2

REPORT INFORMATION
  Report Type: Spontaneous
  Country: KR (occurrence: KR)
  Receive Date: 20220527
  Receipt Date: 20220527
  Transmission Date: 20220720
  Serious: Yes (Other)
  Sender: FDA-Public Use
  Company Number: KR-PFIZER INC-202200751882

PATIENT
  Age: 8 Decade
  Sex: Female

DRUGS (1)
  1. GABAPENTIN [Suspect]
     Active Substance: GABAPENTIN
     Indication: Headache
     Dosage: 100 MG, 2X/DAY
     Route: 048
     Dates: end: 202203

REACTIONS (4)
  - Seizure [Unknown]
  - Amnesia [Unknown]
  - Drug ineffective for unapproved indication [Unknown]
  - Off label use [Unknown]
